FAERS Safety Report 7623513-8 (Version None)
Quarter: 2011Q3

REPORT INFORMATION
  Report Type: 
  Country: None (occurrence: None)
  Receive Date: 20110720
  Receipt Date: 20110705
  Transmission Date: 20111222
  Serious: Yes (Hospitalization)
  Sender: FDA-Public Use
  Company Number: US-SANOFI-AVENTIS-2011SA044476

PATIENT
  Age: 80 Year
  Sex: Female
  Weight: 88 kg

DRUGS (9)
  1. METOPROLOL TARTRATE [Concomitant]
     Route: 065
  2. DILTIAZEM [Concomitant]
     Route: 065
  3. AMLODIPINE BESYLATE [Concomitant]
     Route: 065
  4. OLMESARTAN MEDOXOMIL [Concomitant]
     Route: 065
  5. DRONEDARONE HCL [Suspect]
     Indication: ATRIAL FIBRILLATION
     Route: 048
     Dates: start: 20110127
  6. FUROSEMIDE [Concomitant]
     Route: 065
  7. WARFARIN SODIUM [Concomitant]
     Route: 065
  8. ROSUVASTATIN [Concomitant]
     Route: 065
  9. GLIPIZIDE [Concomitant]
     Route: 065

REACTIONS (2)
  - CARDIAC FAILURE [None]
  - CHRONIC OBSTRUCTIVE PULMONARY DISEASE [None]
